FAERS Safety Report 8032558-8 (Version None)
Quarter: 2012Q1

REPORT INFORMATION
  Report Type: 
  Country: None (occurrence: None)
  Receive Date: 20120110
  Receipt Date: 20110823
  Transmission Date: 20120608
  Serious: No
  Sender: FDA-Public Use
  Company Number: US-MYLANLABS-2011S1012806

PATIENT
  Age: 54 Year
  Sex: Female
  Weight: 98.88 kg

DRUGS (2)
  1. FENOFIBRATE [Suspect]
     Indication: BLOOD CHOLESTEROL INCREASED
     Route: 048
     Dates: start: 20110611, end: 20110618
  2. CLONAZEPAM [Concomitant]

REACTIONS (2)
  - NAUSEA [None]
  - ABDOMINAL PAIN [None]
